FAERS Safety Report 5047138-6 (Version None)
Quarter: 2006Q3

REPORT INFORMATION
  Report Type: 
  Country: None (occurrence: None)
  Receive Date: 20060703
  Receipt Date: 20060622
  Transmission Date: 20061208
  Serious: Yes (Death)
  Sender: FDA-Public Use
  Company Number: 2006059672

PATIENT
  Age: 50 Year
  Sex: Male
  Weight: 70 kg

DRUGS (4)
  1. NORVASC [Suspect]
     Indication: MALIGNANT HYPERTENSION
     Dosage: 5 MG (5 MG, EVERY DAY), ORAL
     Route: 048
     Dates: start: 20040101, end: 20050429
  2. MEGESTROL ACETATE [Suspect]
     Indication: ANOREXIA
     Dosage: 320 MG (160 MG, EVERY DAY), ORAL
     Route: 048
     Dates: start: 20040901, end: 20050429
  3. FUROSEMIDE [Suspect]
     Indication: RENAL DISORDER
     Dosage: 40 MG (40 MG, EVERY DAY), ORAL
     Route: 048
     Dates: start: 20040101, end: 20050429
  4. FUROSEMIDE [Suspect]
     Indication: URETERAL DISORDER
     Dosage: 40 MG (40 MG, EVERY DAY), ORAL
     Route: 048
     Dates: start: 20040101, end: 20050429

REACTIONS (5)
  - ANOREXIA [None]
  - GALLBLADDER DISORDER [None]
  - GRANULOMATOUS LIVER DISEASE [None]
  - HEPATITIS CHOLESTATIC [None]
  - TUBERCULOSIS [None]
